FAERS Safety Report 17360481 (Version 1)
Quarter: 2020Q1

REPORT INFORMATION
  Report Type: Spontaneous
  Country: US (occurrence: US)
  Receive Date: 20200131
  Receipt Date: 20200131
  Transmission Date: 20200409
  Serious: No
  Sender: FDA-Public Use
  Company Number: None

PATIENT
  Age: 26 Year
  Sex: Female
  Weight: 62.1 kg

DRUGS (7)
  1. AMYTRIPTYLLINE [Concomitant]
  2. BIOTIN [Concomitant]
     Active Substance: BIOTIN
  3. PRELIEF (FOR BLADDER) [Concomitant]
  4. HYDROXYZINE [Concomitant]
     Active Substance: HYDROXYZINE HYDROCHLORIDE
  5. PRENATAL VITAMINS [Concomitant]
     Active Substance: VITAMINS
  6. CORLANOR [Suspect]
     Active Substance: IVABRADINE HYDROCHLORIDE
     Indication: SINUS TACHYCARDIA
     Route: 048
     Dates: start: 20200130, end: 20200131
  7. ELMIRON [Concomitant]
     Active Substance: PENTOSAN POLYSULFATE SODIUM

REACTIONS (2)
  - Apnoea [None]
  - Dyspnoea [None]

NARRATIVE: CASE EVENT DATE: 20200130
